FAERS Safety Report 10444917 (Version 2)
Quarter: 2014Q4

REPORT INFORMATION
  Report Type: Report from Study
  Country: DE (occurrence: DE)
  Receive Date: 20140910
  Receipt Date: 20141001
  Transmission Date: 20150528
  Serious: Yes (Other)
  Sender: FDA-Public Use
  Company Number: PHHO2014DE012081

PATIENT

DRUGS (3)
  1. AMN107 [Suspect]
     Active Substance: NILOTINIB
     Indication: CHRONIC MYELOID LEUKAEMIA
     Dosage: 300 MG, BID
     Route: 048
     Dates: start: 20110215
  2. AMN107 [Suspect]
     Active Substance: NILOTINIB
     Dosage: 300 MG, QD (RECURRENT DOSE REDUCTIONS DUE TO BILIRUBIN ELEVATIONS)
     Route: 048
     Dates: start: 201108
  3. HYDROXYUREA. [Concomitant]
     Active Substance: HYDROXYUREA
     Indication: CHEMOTHERAPY
     Dosage: UNK
     Dates: start: 201102

REACTIONS (1)
  - Portal vein thrombosis [Unknown]

NARRATIVE: CASE EVENT DATE: 20110301
